FAERS Safety Report 8014518-6 (Version None)
Quarter: 2011Q4

REPORT INFORMATION
  Report Type: 
  Country: None (occurrence: None)
  Receive Date: 20111223
  Receipt Date: 20111209
  Transmission Date: 20120403
  Serious: Yes (Hospitalization)
  Sender: FDA-Public Use
  Company Number: 2011AP003001

PATIENT
  Age: 74 Year
  Sex: Female

DRUGS (3)
  1. ACETAMINOPHEN W/ CODEINE [Concomitant]
  2. ALENDRONATE SODIUM [Suspect]
     Dosage: 70 MG; QW
  3. IBUPROFEN [Suspect]

REACTIONS (4)
  - GASTROINTESTINAL HAEMORRHAGE [None]
  - DYSPNOEA [None]
  - DIZZINESS [None]
  - FATIGUE [None]
